FAERS Safety Report 18418487 (Version 2)
Quarter: 2020Q4

REPORT INFORMATION
  Report Type: Spontaneous
  Country: None (occurrence: PT)
  Receive Date: 20201023
  Receipt Date: 20201231
  Transmission Date: 20210114
  Serious: Yes (Death, Other)
  Sender: FDA-Public Use
  Company Number: PT-SA-2020SA296159

PATIENT

DRUGS (1)
  1. ENOXAPARIN SODIUM. [Suspect]
     Active Substance: ENOXAPARIN SODIUM
     Indication: PULMONARY EMBOLISM
     Dosage: 120 MG 2 DAILY DOSES
     Route: 065

REACTIONS (6)
  - Haemoperitoneum [Fatal]
  - Hypotension [Fatal]
  - Haemorrhage [Fatal]
  - Hyperlactacidaemia [Fatal]
  - Tachycardia [Fatal]
  - Haemoglobin decreased [Fatal]
